FAERS Safety Report 26090011 (Version 1)
Quarter: 2025Q4

REPORT INFORMATION
  Report Type: Spontaneous
  Country: JP (occurrence: JP)
  Receive Date: 20251126
  Receipt Date: 20251126
  Transmission Date: 20260118
  Serious: Yes (Hospitalization, Other)
  Sender: JOHNSON AND JOHNSON
  Company Number: JP-JNJFOC-20251009562

PATIENT
  Age: 75 Year
  Sex: Female

DRUGS (4)
  1. TALVEY [Suspect]
     Active Substance: TALQUETAMAB-TGVS
     Indication: Product used for unknown indication
     Dosage: DOSE UNKNOWN, FIRST DOSE
     Route: 058
     Dates: start: 20250917, end: 20250917
  2. TALVEY [Suspect]
     Active Substance: TALQUETAMAB-TGVS
     Dosage: DOSE UNKNOWN, SECOND DOSE
     Route: 058
     Dates: start: 202509, end: 202509
  3. TALVEY [Suspect]
     Active Substance: TALQUETAMAB-TGVS
     Dosage: THIRD DOSE
     Route: 058
     Dates: start: 202509, end: 202509
  4. TALVEY [Suspect]
     Active Substance: TALQUETAMAB-TGVS
     Dosage: DECREASED
     Route: 058
     Dates: start: 2025

REACTIONS (4)
  - Immune effector cell-associated neurotoxicity syndrome [Recovered/Resolved]
  - Cytokine release syndrome [Recovered/Resolved]
  - Dementia [Unknown]
  - Urinary tract disorder [Unknown]

NARRATIVE: CASE EVENT DATE: 20250101
